FAERS Safety Report 7246782-5 (Version None)
Quarter: 2011Q1

REPORT INFORMATION
  Report Type: 
  Country: None (occurrence: None)
  Receive Date: 20110127
  Receipt Date: 20110119
  Transmission Date: 20110831
  Serious: Yes (Other)
  Sender: FDA-Public Use
  Company Number: FR-AMGEN-FRASP2011003951

PATIENT
  Age: 62 Year
  Sex: Female

DRUGS (4)
  1. ENBREL [Suspect]
     Indication: RHEUMATOID ARTHRITIS
     Dosage: 50 MG, WEEKLY
     Route: 058
     Dates: start: 20080101, end: 20110101
  2. ALDACTAZINE [Concomitant]
  3. VOLTAREN [Suspect]
     Dosage: 100 MG, 2X/DAY
     Route: 048
     Dates: start: 19920101, end: 20101222
  4. SELOZOK [Concomitant]

REACTIONS (1)
  - RENAL FAILURE [None]
